FAERS Safety Report 22606122 (Version 1)
Quarter: 2023Q2

REPORT INFORMATION
  Report Type: Spontaneous
  Country: IT (occurrence: IT)
  Receive Date: 20230615
  Receipt Date: 20230615
  Transmission Date: 20230721
  Serious: Yes (Other)
  Sender: FDA-Public Use
  Company Number: IT-AMGEN-ITANI2023099686

PATIENT
  Age: 62 Year
  Sex: Male
  Weight: 70 kg

DRUGS (5)
  1. BEVACIZUMAB [Suspect]
     Active Substance: BEVACIZUMAB
     Indication: Hepatocellular carcinoma
     Dosage: 1200 MILLIGRAM
     Route: 065
     Dates: start: 20230406
  2. ATEZOLIZUMAB [Suspect]
     Active Substance: ATEZOLIZUMAB
     Indication: Hepatocellular carcinoma
     Dosage: 1200 MILLIGRAM
     Route: 040
     Dates: start: 20230406
  3. FUROSEMIDE [Concomitant]
     Active Substance: FUROSEMIDE
     Dosage: UNK UNK, QD
     Dates: start: 20230406
  4. PANTOPRAZOLE [Concomitant]
     Active Substance: PANTOPRAZOLE
     Dosage: UNK UNK, QD
     Dates: start: 20230407
  5. EPCLUSA [Concomitant]
     Active Substance: SOFOSBUVIR\VELPATASVIR
     Dosage: UNK
     Dates: start: 20230428

REACTIONS (5)
  - Ascites [Not Recovered/Not Resolved]
  - Hyperbilirubinaemia [Not Recovered/Not Resolved]
  - Blood test abnormal [Not Recovered/Not Resolved]
  - Epistaxis [Recovered/Resolved]
  - Off label use [Unknown]

NARRATIVE: CASE EVENT DATE: 20230406
